FAERS Safety Report 17504664 (Version 1)
Quarter: 2020Q1

REPORT INFORMATION
  Report Type: Spontaneous
  Country: DE (occurrence: DE)
  Receive Date: 20200305
  Receipt Date: 20200305
  Transmission Date: 20200409
  Serious: Yes (Hospitalization, Other)
  Sender: FDA-Public Use
  Company Number: DE-JNJFOC-20200238879

PATIENT
  Sex: Male
  Weight: 66 kg

DRUGS (7)
  1. ADALIMUMAB [Suspect]
     Active Substance: ADALIMUMAB
     Indication: ANKYLOSING SPONDYLITIS
     Route: 065
  2. REMICADE [Suspect]
     Active Substance: INFLIXIMAB
     Indication: ANKYLOSING SPONDYLITIS
     Route: 042
  3. MESALAZINE [Suspect]
     Active Substance: MESALAMINE
     Route: 061
  4. PREDNISOLONE. [Concomitant]
     Active Substance: PREDNISOLONE
  5. SIMPONI [Suspect]
     Active Substance: GOLIMUMAB
     Indication: ANKYLOSING SPONDYLITIS
     Route: 058
  6. MESALAZINE [Suspect]
     Active Substance: MESALAMINE
     Indication: ANKYLOSING SPONDYLITIS
     Route: 048
  7. AZATHIOPRINE. [Concomitant]
     Active Substance: AZATHIOPRINE

REACTIONS (2)
  - Colitis [Unknown]
  - Hypersensitivity [Unknown]
